FAERS Safety Report 7233402-9 (Version None)
Quarter: 2011Q1

REPORT INFORMATION
  Report Type: 
  Country: None (occurrence: None)
  Receive Date: 20110119
  Receipt Date: 20110107
  Transmission Date: 20110831
  Serious: Yes (Hospitalization, Other)
  Sender: FDA-Public Use
  Company Number: US-ELI_LILLY_AND_COMPANY-US201012004702

PATIENT
  Sex: Female

DRUGS (6)
  1. EVISTA [Suspect]
     Indication: OSTEOPENIA
     Dosage: 60 MG, UNK
     Route: 048
  2. FEXOFENADINE HCL [Concomitant]
  3. TRAMADOL HCL [Concomitant]
  4. VITAMIN D [Concomitant]
     Dosage: 1 D/F, UNK
  5. LEXAPRO [Concomitant]
  6. CALCIUM [Concomitant]
     Dosage: 1 D/F, UNK

REACTIONS (6)
  - EPISTAXIS [None]
  - GAIT DISTURBANCE [None]
  - NASOPHARYNGITIS [None]
  - COUGH [None]
  - DYSPNOEA [None]
  - PULMONARY EMBOLISM [None]
